FAERS Safety Report 9360795 (Version 1)
Quarter: 2013Q2

REPORT INFORMATION
  Report Type: Spontaneous
  Country: DE (occurrence: None)
  Receive Date: 20130618
  Receipt Date: 20130618
  Transmission Date: 20140414
  Serious: Yes (Other)
  Sender: FDA-Public Use
  Company Number: AUR-APL-2013-04986

PATIENT
  Age: 25 Year
  Sex: Female
  Weight: 70 kg

DRUGS (2)
  1. TOPIRAMATE (TOPIRAMATE) [Suspect]
     Indication: EPILEPSY
     Dosage: 50-0-50 MG/D, ORAL
     Route: 048
     Dates: start: 2007
  2. THYROXINE (LEVOTHYROXINE SODIUM) [Concomitant]

REACTIONS (2)
  - Abortion spontaneous [None]
  - Maternal exposure during pregnancy [None]
